FAERS Safety Report 24605158 (Version 1)
Quarter: 2024Q4

REPORT INFORMATION
  Report Type: Spontaneous
  Country: US (occurrence: US)
  Receive Date: 20241111
  Receipt Date: 20241111
  Transmission Date: 20250114
  Serious: No
  Sender: PARATEK PHARMACEUTICALS
  Company Number: US-PARATEK PHARMACEUTICALS, INC.-2024PTK00186

PATIENT
  Age: 54 Year
  Sex: Female
  Weight: 134.24 kg

DRUGS (24)
  1. NUZYRA [Suspect]
     Active Substance: OMADACYCLINE
     Indication: Skin ulcer
     Dosage: 450 MG, 1X/DAY
     Route: 048
     Dates: start: 20240304, end: 20240305
  2. NUZYRA [Suspect]
     Active Substance: OMADACYCLINE
     Indication: Enterococcal infection
  3. UNSPECIFIED INGREDIENT [Suspect]
     Active Substance: UNSPECIFIED INGREDIENT
     Indication: Neoplasm malignant
     Dosage: UNK
  4. ADVAIR HFA [Concomitant]
     Active Substance: FLUTICASONE PROPIONATE\SALMETEROL XINAFOATE
  5. ALBUTEROL SULFATE [Concomitant]
     Active Substance: ALBUTEROL SULFATE
  6. ATENOLOL [Concomitant]
     Active Substance: ATENOLOL
     Route: 048
  7. CRESTOR [Concomitant]
     Active Substance: ROSUVASTATIN CALCIUM
     Route: 048
  8. DIAZEPAM [Concomitant]
     Active Substance: DIAZEPAM
  9. DILTIAZEM HYDROCHLORIDE [Concomitant]
     Active Substance: DILTIAZEM HYDROCHLORIDE
     Route: 048
  10. FEXOFENADINE HYDROCHLORIDE [Concomitant]
     Active Substance: FEXOFENADINE HYDROCHLORIDE
     Route: 048
  11. FLONASE [Concomitant]
     Active Substance: FLUTICASONE PROPIONATE
     Route: 045
  12. FUROSEMIDE [Concomitant]
     Active Substance: FUROSEMIDE
     Route: 048
  13. GABAPENTIN [Concomitant]
     Active Substance: GABAPENTIN
     Route: 048
  14. LEVOTHYROXINE [Concomitant]
     Active Substance: LEVOTHYROXINE
  15. LISINOPRIL [Concomitant]
     Active Substance: LISINOPRIL
  16. LITHIUM CARBONATE [Concomitant]
     Active Substance: LITHIUM CARBONATE
  17. METFORMIN HYDROCHLORIDE [Concomitant]
     Active Substance: METFORMIN HYDROCHLORIDE
     Route: 048
  18. MIRTAZAPINE [Concomitant]
     Active Substance: MIRTAZAPINE
     Route: 048
  19. OMEPRAZOLE DELAYED RELEASE [OMEPRAZOLE] [Concomitant]
     Route: 048
  20. SINGULAIR [Concomitant]
     Active Substance: MONTELUKAST SODIUM
     Route: 048
  21. TOUJEO [Concomitant]
     Active Substance: INSULIN GLARGINE
     Route: 058
  22. TRIAMTERENE AND HYDROCHLOROTHIAZIDE [Concomitant]
     Active Substance: HYDROCHLOROTHIAZIDE\TRIAMTERENE
     Route: 048
  23. TRULICITY [Concomitant]
     Active Substance: DULAGLUTIDE
     Route: 058
  24. VITAMIN D NOS [Concomitant]
     Active Substance: CHOLECALCIFEROL\ERGOCALCIFEROL

REACTIONS (6)
  - Visual impairment [Recovered/Resolved]
  - Dizziness [Recovered/Resolved]
  - Drug interaction [Recovered/Resolved]
  - Abdominal discomfort [Recovering/Resolving]
  - Diarrhoea [Recovering/Resolving]
  - Contraindicated product administered [Recovered/Resolved]

NARRATIVE: CASE EVENT DATE: 20240304
